FAERS Safety Report 25422762 (Version 1)
Quarter: 2025Q2

REPORT INFORMATION
  Report Type: Spontaneous
  Country: US (occurrence: None)
  Receive Date: 20250610
  Receipt Date: 20250610
  Transmission Date: 20250717
  Serious: Yes (Hospitalization)
  Sender: FDA-CTU
  Company Number: None

PATIENT
  Age: 79 Year
  Sex: Male

DRUGS (3)
  1. PIPERACILLIN SODIUM\TAZOBACTAM SODIUM [Suspect]
     Active Substance: PIPERACILLIN SODIUM\TAZOBACTAM SODIUM
     Indication: Perirectal abscess
     Route: 042
     Dates: start: 20250602, end: 20250602
  2. BENADRYL [Suspect]
     Active Substance: DIPHENHYDRAMINE HYDROCHLORIDE
  3. EPINEPHRINE [Suspect]
     Active Substance: EPINEPHRINE

REACTIONS (6)
  - Anaphylactic reaction [None]
  - Angioedema [None]
  - Confusional state [None]
  - Tachycardia [None]
  - Enlarged uvula [None]
  - Drug hypersensitivity [None]

NARRATIVE: CASE EVENT DATE: 20250602
